FAERS Safety Report 18952700 (Version 1)
Quarter: 2021Q1

REPORT INFORMATION
  Report Type: Report from Study
  Country: None (occurrence: US)
  Receive Date: 20210301
  Receipt Date: 20210301
  Transmission Date: 20210420
  Serious: Yes (Other)
  Sender: FDA-Public Use
  Company Number: US-BIOVITRUM-2021US1977

PATIENT
  Age: 7 Year
  Sex: Male

DRUGS (2)
  1. KINERET [Suspect]
     Active Substance: ANAKINRA
     Indication: INFECTION SUSCEPTIBILITY INCREASED
     Route: 058
     Dates: start: 20180623
  2. KINERET [Suspect]
     Active Substance: ANAKINRA
     Indication: RELAPSING FEVER

REACTIONS (4)
  - Infection susceptibility increased [Unknown]
  - Relapsing fever [Unknown]
  - Off label use [Not Recovered/Not Resolved]
  - Condition aggravated [Unknown]

NARRATIVE: CASE EVENT DATE: 20180623
